FAERS Safety Report 6001900-1 (Version None)
Quarter: 2008Q4

REPORT INFORMATION
  Report Type: 
  Country: None (occurrence: None)
  Receive Date: 20081215
  Receipt Date: 20081211
  Transmission Date: 20090506
  Serious: No
  Sender: FDA-Public Use
  Company Number: US-GENENTECH-272611

PATIENT
  Sex: Female
  Weight: 68.18 kg

DRUGS (2)
  1. RAPTIVA [Suspect]
     Indication: PSORIASIS
     Dosage: 47.73 MG, SINGLE
     Route: 058
     Dates: start: 20080216
  2. RAPTIVA [Suspect]
     Dosage: 68.18 MG, 1/WEEK
     Route: 058
     Dates: end: 20080520

REACTIONS (3)
  - PSORIASIS [None]
  - RASH [None]
  - SKIN LESION [None]
